FAERS Safety Report 5424400-6 (Version None)
Quarter: 2007Q3

REPORT INFORMATION
  Report Type: 
  Country: None (occurrence: None)
  Receive Date: 20070731
  Receipt Date: 20070403
  Transmission Date: 20080115
  Serious: No
  Sender: FDA-Public Use
  Company Number: US200704000947

PATIENT
  Age: 70 Year
  Sex: Female
  Weight: 81.6 kg

DRUGS (5)
  1. BYETTA [Suspect]
     Indication: TYPE 2 DIABETES MELLITUS
     Dosage: 5 UG, 2/D, SUBCUTANEOUS
     Route: 058
     Dates: start: 20070310, end: 20070402
  2. AVANDIA [Concomitant]
  3. DIOVAN (HYDROCHLOROTHIAZIDE, VALSARTAN) [Concomitant]
  4. SPIRONOLACTONE W/HYDROCHLOROTHIAZIDE (HYDROCHLOROTHIAZIDE, SPIRONOLACT [Concomitant]
  5. METOPROLOL TARTRATE [Concomitant]

REACTIONS (7)
  - DIZZINESS [None]
  - FEELING ABNORMAL [None]
  - FEELING DRUNK [None]
  - FLUSHING [None]
  - GAIT DISTURBANCE [None]
  - HANGOVER [None]
  - LABYRINTHITIS [None]
